FAERS Safety Report 7686477-7 (Version None)
Quarter: 2011Q3

REPORT INFORMATION
  Report Type: 
  Country: None (occurrence: None)
  Receive Date: 20110816
  Receipt Date: 20110618
  Transmission Date: 20111222
  Serious: Yes (Other)
  Sender: FDA-Public Use
  Company Number: BR-JNJFOC-20110806279

PATIENT
  Sex: Male

DRUGS (5)
  1. REMICADE [Suspect]
     Indication: ANKYLOSING SPONDYLITIS
     Dosage: DOSE ALSO REPORTED AS 4 MG/KG
     Route: 042
     Dates: start: 20070731
  2. NAPROXEN [Concomitant]
     Indication: NECK PAIN
     Route: 048
  3. CYCLOBENZAPRINE [Concomitant]
     Indication: NECK PAIN
  4. NAPROXEN [Concomitant]
     Indication: ARTHRALGIA
     Route: 048
  5. CYCLOBENZAPRINE [Concomitant]
     Indication: ARTHRALGIA

REACTIONS (2)
  - OSTEOPOROSIS [None]
  - EMPHYSEMA [None]
